FAERS Safety Report 9874811 (Version 1)
Quarter: 2014Q1

REPORT INFORMATION
  Report Type: Other
  Country: US (occurrence: US)
  Receive Date: 20140206
  Receipt Date: 20140206
  Transmission Date: 20141002
  Serious: No
  Sender: FDA-Public Use
  Company Number: US-ACORDA-ACO_35255_2013

PATIENT
  Age: 61 Year
  Sex: Female
  Weight: 47.17 kg

DRUGS (9)
  1. AMPYRA [Suspect]
     Indication: PRODUCT USED FOR UNKNOWN INDICATION
     Dosage: 10 MG, BID
     Route: 048
  2. MIDODRINE HCL [Concomitant]
     Dosage: 2.5 MG, UNK
     Route: 065
  3. BACLOFEN [Concomitant]
     Dosage: 10 MG, UNK
     Route: 065
  4. MIRAPEX [Concomitant]
     Dosage: 1 UNK, UNK
     Route: 065
  5. TYLENOL [Concomitant]
     Dosage: 650 MG, UNK
     Route: 065
  6. CALCIUM +D [Concomitant]
     Dosage: UNK
     Route: 065
  7. CENTRUM SILVER [Concomitant]
     Dosage: UNK
     Route: 065
  8. FISH OIL [Concomitant]
     Route: 065
  9. COPAXONE [Concomitant]
     Dosage: 20 MG/ML, UNK
     Route: 065

REACTIONS (1)
  - Dizziness [Unknown]
